FAERS Safety Report 18466569 (Version 1)
Quarter: 2020Q4

REPORT INFORMATION
  Report Type: Spontaneous
  Country: US (occurrence: US)
  Receive Date: 20201105
  Receipt Date: 20201105
  Transmission Date: 20210114
  Serious: Yes (Hospitalization)
  Sender: FDA-Public Use
  Company Number: US-LUPIN PHARMACEUTICALS INC.-2020-08320

PATIENT
  Age: 4 Month
  Sex: Male
  Weight: 7.07 kg

DRUGS (3)
  1. OSELTAMIVIR [Suspect]
     Active Substance: OSELTAMIVIR
     Indication: INFLUENZA
     Dosage: 21 MILLIGRAM (OSELTAMIVIR (3MG/KG/DOSE); TOTAL 2 DOSES WERE ADMINISTERED; THE MANUFACTURER OF THE PR
     Route: 065
  2. OSELTAMIVIR [Suspect]
     Active Substance: OSELTAMIVIR
     Dosage: 21 MILLIGRAM (3 MG/KG/DOSE; PREPARED AS A PATIENT-SPECIFIC DOSE FROM A COMMERCIALLY AVAILABLE 6 MG/M
     Route: 065
  3. ACETAMINOPHEN. [Concomitant]
     Active Substance: ACETAMINOPHEN
     Indication: PYREXIA
     Dosage: 10 MILLIGRAM/KILOGRAM
     Route: 065

REACTIONS (1)
  - Supraventricular tachycardia [Recovered/Resolved]
